FAERS Safety Report 8821885 (Version 1)
Quarter: 2012Q4

REPORT INFORMATION
  Report Type: 
  Country: US (occurrence: US)
  Receive Date: 20121002
  Receipt Date: 20121002
  Transmission Date: 20130627
  Serious: Yes (Hospitalization)
  Sender: FDA-Public Use
  Company Number: US-MERCK-1210USA000595

PATIENT
  Sex: Male

DRUGS (2)
  1. JANUVIA [Suspect]
  2. TRADJENTA [Suspect]

REACTIONS (1)
  - Pancreatitis [Unknown]
